FAERS Safety Report 23156340 (Version 1)
Quarter: 2023Q4

REPORT INFORMATION
  Report Type: Report from Study
  Country: TR (occurrence: TR)
  Receive Date: 20231107
  Receipt Date: 20231107
  Transmission Date: 20240110
  Serious: Yes (Other)
  Sender: FDA-Public Use
  Company Number: TR-AUROBINDO-AUR-APL-2023-067138

PATIENT

DRUGS (4)
  1. MELPHALAN [Suspect]
     Active Substance: MELPHALAN
     Indication: Lymphoma
     Dosage: 140 MILLIGRAM/SQ. METER
     Route: 065
  2. CYTARABINE [Suspect]
     Active Substance: CYTARABINE
     Indication: Lymphoma
     Dosage: 200 MILLIGRAM/SQ. METER
     Route: 065
  3. ETOPOSIDE [Suspect]
     Active Substance: ETOPOSIDE
     Indication: Lymphoma
     Dosage: 100 MILLIGRAM/SQ. METER
     Route: 065
  4. THIOTEPA [Suspect]
     Active Substance: THIOTEPA
     Indication: Lymphoma
     Dosage: UNK
     Route: 065

REACTIONS (1)
  - Enterovirus infection [Unknown]
